FAERS Safety Report 18329384 (Version 1)
Quarter: 2020Q3

REPORT INFORMATION
  Report Type: Spontaneous
  Country: US (occurrence: US)
  Receive Date: 20200930
  Receipt Date: 20200930
  Transmission Date: 20201103
  Serious: Yes (Death)
  Sender: FDA-Public Use
  Company Number: None

PATIENT
  Age: 80 Year
  Sex: Male
  Weight: 102 kg

DRUGS (3)
  1. PLAVIX [Suspect]
     Active Substance: CLOPIDOGREL BISULFATE
  2. TENECTEPLASE [Suspect]
     Active Substance: TENECTEPLASE
  3. HEPARIN [Suspect]
     Active Substance: HEPARIN SODIUM

REACTIONS (4)
  - Cardiac pacemaker insertion [None]
  - Vomiting [None]
  - Cerebral haemorrhage [None]
  - Nausea [None]

NARRATIVE: CASE EVENT DATE: 20200926
